FAERS Safety Report 23526359 (Version 1)
Quarter: 2024Q1

REPORT INFORMATION
  Report Type: Spontaneous
  Country: SE (occurrence: SE)
  Receive Date: 20240215
  Receipt Date: 20240215
  Transmission Date: 20240410
  Serious: Yes (Hospitalization)
  Sender: FDA-Public Use
  Company Number: None

PATIENT
  Age: 29 Year
  Sex: Female
  Weight: 57 kg

DRUGS (1)
  1. SUMATRIPTAN [Suspect]
     Active Substance: SUMATRIPTAN
     Indication: Migraine
     Dosage: TIME INTERVAL: 1 AS NECESSARY: IF NECESSARY, MAX 2 TIMES/DAY
     Route: 048
     Dates: start: 20061212

REACTIONS (35)
  - Abdominal pain [Not Recovered/Not Resolved]
  - Dysphagia [Unknown]
  - Head discomfort [Not Recovered/Not Resolved]
  - Limb discomfort [Unknown]
  - Memory impairment [Unknown]
  - Loss of employment [Unknown]
  - Heart rate increased [Unknown]
  - Poisoning [Unknown]
  - Tremor [Unknown]
  - Visual impairment [Unknown]
  - Presyncope [Unknown]
  - Visual impairment [Unknown]
  - Balance disorder [Unknown]
  - Somnolence [Unknown]
  - Fear of death [Unknown]
  - Asthenia [Unknown]
  - Myalgia [Unknown]
  - Dysgraphia [Not Recovered/Not Resolved]
  - Dizziness [Unknown]
  - Photopsia [Unknown]
  - Anxiety [Unknown]
  - Night sweats [Unknown]
  - Palpitations [Unknown]
  - Weight decreased [Unknown]
  - Aphasia [Not Recovered/Not Resolved]
  - Nocturnal dyspnoea [Unknown]
  - Rash erythematous [Unknown]
  - Epistaxis [Unknown]
  - Nausea [Unknown]
  - Gastrooesophageal reflux disease [Unknown]
  - Fatigue [Unknown]
  - Arthralgia [Unknown]
  - Chest discomfort [Unknown]
  - Respiratory arrest [Unknown]
  - Diplopia [Unknown]

NARRATIVE: CASE EVENT DATE: 20061201
